FAERS Safety Report 7469967-1 (Version None)
Quarter: 2011Q2

REPORT INFORMATION
  Report Type: 
  Country: None (occurrence: None)
  Receive Date: 20110510
  Receipt Date: 20110506
  Transmission Date: 20111010
  Serious: Yes (Hospitalization)
  Sender: FDA-Public Use
  Company Number: JP-ROCHE-762737

PATIENT
  Sex: Male
  Weight: 65.5 kg

DRUGS (10)
  1. TEMOZOLOMIDE [Suspect]
     Dosage: LAST DOSE PRIOR TO SAE: 28 MAY 2011. MAINTANANCE PHASE.
     Route: 048
     Dates: start: 20110224
  2. TEMOZOLOMIDE [Suspect]
     Indication: GLIOBLASTOMA
     Dosage: FREQUENCY: QD
     Route: 048
     Dates: start: 20101213, end: 20110129
  3. AVASTIN [Suspect]
     Dosage: MAINTANANCE PHASE. LAST DOSE PRIOR TO SAE: 24 FEB 2011
     Route: 042
     Dates: start: 20110224
  4. RAMOSETRON HYDROCHLORIDE [Concomitant]
     Dates: start: 20101213
  5. AVASTIN [Suspect]
     Dosage: CYCLE 1 DAY 15 OF THE MAINTENANCE PHASE WAS ADMINISTERED, DATE OF LAST DOSE PRIOR TO SAE:06 APR 2011
     Route: 042
     Dates: start: 20110309
  6. VALPROATE SODIUM [Concomitant]
     Dates: start: 20110301
  7. AVASTIN [Suspect]
     Indication: GLIOBLASTOMA
     Dosage: FORM:INFUSION, FREQUENCY: D1Q2W. FORM: INFUSION.
     Route: 042
     Dates: start: 20101213, end: 20110129
  8. MAGNESIUM OXIDE [Concomitant]
     Dates: start: 20101213
  9. LANSOPRAZOLE [Concomitant]
  10. NIFEDIPINE [Concomitant]
     Dates: start: 20101213

REACTIONS (1)
  - CONVULSION [None]
